FAERS Safety Report 8555722-8 (Version None)
Quarter: 2012Q3

REPORT INFORMATION
  Report Type: 
  Country: None (occurrence: None)
  Receive Date: 20120801
  Receipt Date: 20120723
  Transmission Date: 20120928
  Serious: Yes (Hospitalization)
  Sender: FDA-Public Use
  Company Number: US-MSD-1207USA009883

PATIENT

DRUGS (2)
  1. ZOCOR [Suspect]
     Dosage: 20 MG, UNK
     Route: 048
  2. DILTIAZEM HCL [Suspect]
     Dosage: 300 MG, UNK

REACTIONS (3)
  - CHYLOTHORAX [None]
  - INFLAMMATION [None]
  - ANAEMIA [None]
